FAERS Safety Report 9208221 (Version 1)
Quarter: 2013Q2

REPORT INFORMATION
  Report Type: Spontaneous
  Country: CZ (occurrence: CZ)
  Receive Date: 20130403
  Receipt Date: 20130403
  Transmission Date: 20140414
  Serious: Yes (Other)
  Sender: FDA-Public Use
  Company Number: CZ-009507513-1303CZE012569

PATIENT
  Age: 75 Year
  Sex: Female

DRUGS (7)
  1. SINGULAIR [Suspect]
     Indication: ASTHMA
     Route: 048
     Dates: start: 20110523, end: 20110916
  2. BECLOMETHASONE DIPROPIONATE [Concomitant]
     Route: 055
  3. AERIUS [Concomitant]
  4. RHINOCORT AQUA [Concomitant]
     Indication: ASTHMA
  5. ATROVENT [Concomitant]
     Indication: ASTHMA
  6. ZAFIRLUKAST [Concomitant]
  7. ATIMOS [Concomitant]
     Indication: ASTHMA
     Route: 055

REACTIONS (3)
  - Suicidal ideation [Recovered/Resolved]
  - Dizziness [Recovered/Resolved]
  - Visual impairment [Recovered/Resolved]
